FAERS Safety Report 5442244-6 (Version None)
Quarter: 2007Q3

REPORT INFORMATION
  Report Type: 
  Country: None (occurrence: None)
  Receive Date: 20070731
  Receipt Date: 20070529
  Transmission Date: 20080115
  Serious: No
  Sender: FDA-Public Use
  Company Number: US200706004093

PATIENT
  Age: 42 Year
  Sex: Male
  Weight: 121.1 kg

DRUGS (10)
  1. BYETTA [Suspect]
     Indication: TYPE 2 DIABETES MELLITUS
     Dosage: 5 UG, 2/D, SUBCUTANEOUS; 5 UG, 2/D, SUBCUTANEOUS; 10 UG, 2/D, SUBCUTANEOUS
     Route: 058
     Dates: start: 20070301, end: 20070501
  2. BYETTA [Suspect]
     Indication: TYPE 2 DIABETES MELLITUS
     Dosage: 5 UG, 2/D, SUBCUTANEOUS; 5 UG, 2/D, SUBCUTANEOUS; 10 UG, 2/D, SUBCUTANEOUS
     Route: 058
     Dates: start: 20070401, end: 20070521
  3. BYETTA [Suspect]
     Indication: TYPE 2 DIABETES MELLITUS
     Dosage: 5 UG, 2/D, SUBCUTANEOUS; 5 UG, 2/D, SUBCUTANEOUS; 10 UG, 2/D, SUBCUTANEOUS
     Route: 058
     Dates: start: 20070522
  4. ACTOS [Concomitant]
  5. GLYBURIDE [Concomitant]
  6. LANTUS [Concomitant]
  7. COUMADIN [Concomitant]
  8. TRILEPTAL [Concomitant]
  9. TOPAMAX [Concomitant]
  10. KLONOPIN [Concomitant]

REACTIONS (10)
  - ANOREXIA [None]
  - BLOOD GLUCOSE DECREASED [None]
  - CHILLS [None]
  - DIARRHOEA [None]
  - DIZZINESS [None]
  - GASTROENTERITIS VIRAL [None]
  - NAUSEA [None]
  - PYREXIA [None]
  - TREMOR [None]
  - WEIGHT DECREASED [None]
